FAERS Safety Report 20443111 (Version 1)
Quarter: 2022Q1

REPORT INFORMATION
  Report Type: Spontaneous
  Country: CN (occurrence: CN)
  Receive Date: 20220208
  Receipt Date: 20220208
  Transmission Date: 20220423
  Serious: Yes (Other)
  Sender: FDA-Public Use
  Company Number: CN-002147023-NVSC2022CN020246

PATIENT
  Age: 55 Year
  Sex: Female

DRUGS (2)
  1. LUCENTIS [Suspect]
     Active Substance: RANIBIZUMAB
     Indication: Product used for unknown indication
     Dosage: DEC 21ST (YEAR UNSPECIFIED) (1ST INJECTION)
     Route: 065
  2. LUCENTIS [Suspect]
     Active Substance: RANIBIZUMAB
     Dosage: JAN 25TH (YEAR UNSPECIFIED) (1ST INJECTION)
     Route: 065

REACTIONS (9)
  - Macular oedema [Unknown]
  - Retinal vein occlusion [Unknown]
  - Cataract [Unknown]
  - Ocular discomfort [Unknown]
  - Diplopia [Unknown]
  - Ocular hyperaemia [Unknown]
  - Headache [Unknown]
  - Dry eye [Unknown]
  - Drug ineffective [Unknown]
